FAERS Safety Report 8321515-X (Version None)
Quarter: 2012Q2

REPORT INFORMATION
  Report Type: 
  Country: None (occurrence: None)
  Receive Date: 20120430
  Receipt Date: 20120430
  Transmission Date: 20120825
  Serious: Yes (Other)
  Sender: FDA-Public Use
  Company Number: None

PATIENT
  Age: 50 Year
  Sex: Male
  Weight: 134.71 kg

DRUGS (2)
  1. AZOR [Suspect]
     Indication: HYPERTENSION
  2. AZOR [Suspect]
     Indication: HYPERTENSION
     Dates: start: 20070101, end: 20120101

REACTIONS (1)
  - WEIGHT INCREASED [None]
